FAERS Safety Report 7151069-5 (Version None)
Quarter: 2010Q4

REPORT INFORMATION
  Report Type: 
  Country: None (occurrence: None)
  Receive Date: 20101126
  Receipt Date: 20101115
  Transmission Date: 20110411
  Serious: Yes (Other)
  Sender: FDA-Public Use
  Company Number: 2010P1002756

PATIENT
  Age: 60 Year
  Sex: Male

DRUGS (3)
  1. AMITRIPTYLINE HCL [Suspect]
     Indication: DEPRESSION
  2. FLUPHENAZINE [Suspect]
     Indication: DEPRESSION
  3. CISPLATIN [Suspect]

REACTIONS (3)
  - COMA [None]
  - HYPOURICAEMIA [None]
  - INAPPROPRIATE ANTIDIURETIC HORMONE SECRETION [None]
